FAERS Safety Report 10072395 (Version 1)
Quarter: 2014Q2

REPORT INFORMATION
  Report Type: Spontaneous
  Country: BR (occurrence: BR)
  Receive Date: 20140411
  Receipt Date: 20140411
  Transmission Date: 20141212
  Serious: Yes (Hospitalization)
  Sender: FDA-Public Use
  Company Number: BR-SA-2014SA040648

PATIENT
  Sex: Female
  Weight: 55 kg

DRUGS (7)
  1. LANTUS SOLOSTAR [Suspect]
     Indication: TYPE 2 DIABETES MELLITUS
     Route: 058
     Dates: start: 2014
  2. SOLOSTAR [Concomitant]
     Indication: DEVICE THERAPY
     Dates: start: 2014
  3. INDAPEN [Concomitant]
     Dosage: STRENGTH: 1.5 MG
     Route: 048
  4. SOMALGIN [Concomitant]
     Dosage: STRENGTH: 100 MG
     Route: 048
  5. LOSARTAN [Concomitant]
     Dosage: STRENGTH: 50 MG
     Route: 048
  6. IVABRADINE HYDROCHLORIDE [Concomitant]
     Dosage: STRENGTH: 7.5 MG
     Route: 048
  7. SELOZOK [Concomitant]
     Dosage: STRENGTH: 10 MG
     Route: 048

REACTIONS (4)
  - Fall [Unknown]
  - Ligament rupture [Unknown]
  - Hyperglycaemia [Recovering/Resolving]
  - Drug ineffective [Unknown]
